FAERS Safety Report 15916654 (Version 3)
Quarter: 2019Q4

REPORT INFORMATION
  Report Type: Report from Study
  Country: JP (occurrence: JP)
  Receive Date: 20190205
  Receipt Date: 20191220
  Transmission Date: 20200122
  Serious: Yes (Other)
  Sender: FDA-Public Use
  Company Number: JP-ALEXION PHARMACEUTICALS INC-A201815824

PATIENT

DRUGS (2)
  1. STRENSIQ [Suspect]
     Active Substance: ASFOTASE ALFA
     Indication: HYPOPHOSPHATASIA
     Dosage: 2 MG/KG, TIW
     Route: 058
     Dates: start: 20150930
  2. EMLA [Concomitant]
     Active Substance: LIDOCAINE\PRILOCAINE
     Indication: PROPHYLAXIS
     Dosage: PROPER DOSE, TIW
     Route: 062

REACTIONS (3)
  - Eczema asteatotic [Not Recovered/Not Resolved]
  - Loose tooth [Not Recovered/Not Resolved]
  - Rickets [Recovered/Resolved]

NARRATIVE: CASE EVENT DATE: 20171025
